FAERS Safety Report 4747845-6 (Version None)
Quarter: 2005Q3

REPORT INFORMATION
  Report Type: 
  Country: None (occurrence: None)
  Receive Date: 20050818
  Receipt Date: 20041111
  Transmission Date: 20060218
  Serious: No
  Sender: FDA-Public Use
  Company Number: US-BRISTOL-MYERS SQUIBB COMPANY-12763348

PATIENT
  Age: 37 Year
  Sex: Female
  Weight: 52 kg

DRUGS (2)
  1. MEGACE [Suspect]
     Indication: WEIGHT DECREASED
     Route: 048
     Dates: start: 20040601, end: 20040801
  2. LOPRESSOR [Concomitant]

REACTIONS (1)
  - AMENORRHOEA [None]
